FAERS Safety Report 5723892-2 (Version None)
Quarter: 2008Q2

REPORT INFORMATION
  Report Type: 
  Country: None (occurrence: None)
  Receive Date: 20080428
  Receipt Date: 20080416
  Transmission Date: 20081010
  Serious: Yes (Other)
  Sender: FDA-Public Use
  Company Number: 2008009832

PATIENT
  Sex: Female

DRUGS (3)
  1. FRESHBURST LISTERINE (MENTHOL METHYL SALICYLATE, EUCALYPTOL, THYMOL) [Suspect]
     Indication: DENTAL DISORDER PROPHYLAXIS
     Dosage: 10 ML 2X PER DAY (2 IN 1 D),ORAL
     Route: 048
     Dates: start: 20080312, end: 20080316
  2. ACEBUTOLOL [Concomitant]
  3. SPIRONOLACTONE [Concomitant]

REACTIONS (2)
  - CAUSTIC INJURY [None]
  - STOMATITIS [None]
